FAERS Safety Report 8922925 (Version 1)
Quarter: 2012Q4

REPORT INFORMATION
  Report Type: 
  Country: NZ (occurrence: NZ)
  Receive Date: 20121123
  Receipt Date: 20121123
  Transmission Date: 20130627
  Serious: Yes (Other)
  Sender: FDA-Public Use
  Company Number: NZ-PFIZER INC-2012275318

PATIENT
  Age: 52 Year
  Sex: Female
  Weight: 56 kg

DRUGS (2)
  1. CHAMPIX [Suspect]
     Indication: SMOKER
     Dosage: 1 mg, 2x/day
     Route: 048
     Dates: start: 20121105, end: 20121112
  2. SYMBICORT [Concomitant]
     Indication: ASTHMA
     Dosage: 2 twice daily

REACTIONS (6)
  - Fatigue [Recovered/Resolved]
  - Feeling abnormal [Recovered/Resolved]
  - Vomiting [Recovered/Resolved]
  - Nausea [Unknown]
  - Vision blurred [Unknown]
  - Insomnia [Unknown]
